FAERS Safety Report 11860022 (Version 15)
Quarter: 2017Q4

REPORT INFORMATION
  Report Type: Report from Study
  Country: ID (occurrence: ID)
  Receive Date: 20151222
  Receipt Date: 20171220
  Transmission Date: 20180320
  Serious: Yes (Death, Hospitalization, Other)
  Sender: FDA-Public Use
  Company Number: ID-BAYER-2015-360619

PATIENT
  Age: 65 Year
  Sex: Male

DRUGS (9)
  1. NEXAVAR [Suspect]
     Active Substance: SORAFENIB
     Indication: HEPATOCELLULAR CARCINOMA
     Dosage: 400 MG, QOD
     Route: 048
     Dates: start: 201306
  2. NEXAVAR [Suspect]
     Active Substance: SORAFENIB
     Indication: HEPATOCELLULAR CARCINOMA
     Dosage: UNK MG, UNK
     Route: 048
     Dates: start: 201104, end: 201203
  3. NEXAVAR [Suspect]
     Active Substance: SORAFENIB
     Indication: HEPATOCELLULAR CARCINOMA
     Dosage: 200 MG, BID
     Route: 048
     Dates: start: 201306
  4. NEXAVAR [Suspect]
     Active Substance: SORAFENIB
     Indication: HEPATOCELLULAR CARCINOMA
     Dosage: 200 MG, BID
     Route: 048
     Dates: start: 20110209, end: 2011
  5. NEXAVAR [Suspect]
     Active Substance: SORAFENIB
     Indication: HEPATOCELLULAR CARCINOMA
     Dosage: 400 MG, QD (DAILY)
     Route: 048
     Dates: start: 201605, end: 2016
  6. NEXAVAR [Suspect]
     Active Substance: SORAFENIB
     Indication: HEPATOCELLULAR CARCINOMA
     Dosage: 400 MG, QD
     Route: 048
  7. NEXAVAR [Suspect]
     Active Substance: SORAFENIB
     Indication: HEPATOCELLULAR CARCINOMA
     Dosage: 400 MG, QD (3 DAYS TOOK FOLLOWED WITH 2 DAYS OFF)
     Route: 048
  8. NEXAVAR [Suspect]
     Active Substance: SORAFENIB
     Indication: HEPATOCELLULAR CARCINOMA
     Dosage: 400 MG, QOD (2X200 MG EOD)
     Route: 048
     Dates: start: 20160813
  9. NEXAVAR [Suspect]
     Active Substance: SORAFENIB
     Indication: HEPATOCELLULAR CARCINOMA
     Dosage: 400 MG, DAILY
     Route: 048
     Dates: end: 20171205

REACTIONS (46)
  - Gait inability [Recovering/Resolving]
  - Dry throat [Recovering/Resolving]
  - Palmar-plantar erythrodysaesthesia syndrome [Not Recovered/Not Resolved]
  - Hepatic neoplasm [None]
  - Alpha 1 foetoprotein increased [Not Recovered/Not Resolved]
  - Myalgia [Recovering/Resolving]
  - Aphonia [None]
  - Abdominal distension [Not Recovered/Not Resolved]
  - Frequent bowel movements [None]
  - Toothache [Recovering/Resolving]
  - Blister [Recovering/Resolving]
  - Arthralgia [Not Recovered/Not Resolved]
  - Palmar-plantar erythrodysaesthesia syndrome [Recovered/Resolved]
  - Palmoplantar keratoderma [Not Recovered/Not Resolved]
  - Gingival pain [Not Recovered/Not Resolved]
  - Increased tendency to bruise [Recovering/Resolving]
  - Hyponatraemia [Fatal]
  - Alpha 1 foetoprotein increased [None]
  - Pruritus [Recovered/Resolved]
  - Muscle spasms [None]
  - Eating disorder [None]
  - Oropharyngeal pain [Not Recovered/Not Resolved]
  - Abdominal discomfort [None]
  - Gait disturbance [None]
  - Pain in extremity [None]
  - Diarrhoea [Recovered/Resolved]
  - Fatigue [Recovering/Resolving]
  - Hypophagia [Fatal]
  - Ascites [None]
  - Hepatic neoplasm [Not Recovered/Not Resolved]
  - Dry throat [Recovering/Resolving]
  - Dysgeusia [Not Recovered/Not Resolved]
  - Coordination abnormal [Not Recovered/Not Resolved]
  - Asthenia [Recovering/Resolving]
  - Fatigue [Not Recovered/Not Resolved]
  - Asthenia [Fatal]
  - Hepatic function abnormal [None]
  - Yellow skin [None]
  - Feeling hot [None]
  - Dry mouth [None]
  - Palmar-plantar erythrodysaesthesia syndrome [Not Recovered/Not Resolved]
  - Malaise [Not Recovered/Not Resolved]
  - Haemoglobin decreased [Fatal]
  - Oedema peripheral [None]
  - Pain [None]
  - Tumour rupture [None]

NARRATIVE: CASE EVENT DATE: 201307
